FAERS Safety Report 8858695 (Version 1)
Quarter: 2012Q4

REPORT INFORMATION
  Report Type: 
  Country: DE (occurrence: DE)
  Receive Date: 20121024
  Receipt Date: 20121024
  Transmission Date: 20130627
  Serious: Yes (Hospitalization)
  Sender: FDA-Public Use
  Company Number: DE-JNJFOC-20121008151

PATIENT
  Sex: Female
  Weight: 75 kg

DRUGS (2)
  1. REMICADE [Suspect]
     Indication: CROHN^S DISEASE
     Route: 042
     Dates: start: 20110912
  2. REMICADE [Suspect]
     Indication: CROHN^S DISEASE
     Route: 042
     Dates: start: 20120326

REACTIONS (6)
  - Borderline personality disorder [Unknown]
  - Urinary tract infection [Unknown]
  - Diarrhoea [Recovering/Resolving]
  - Hypochromic anaemia [Unknown]
  - Anaemia macrocytic [Unknown]
  - Abdominal pain [Recovering/Resolving]
